FAERS Safety Report 12758776 (Version 1)
Quarter: 2016Q3

REPORT INFORMATION
  Report Type: Spontaneous
  Country: US (occurrence: US)
  Receive Date: 20160918
  Receipt Date: 20160918
  Transmission Date: 20161109
  Serious: Yes (Life-Threatening)
  Sender: FDA-Public Use
  Company Number: None

PATIENT
  Age: 69 Year
  Sex: Male
  Weight: 112.5 kg

DRUGS (8)
  1. ATORVASTATIN TAB [Suspect]
     Active Substance: ATORVASTATIN
     Indication: HYPERTENSION
  2. ATORVASTATIN TAB [Suspect]
     Active Substance: ATORVASTATIN
     Indication: BLOOD CHOLESTEROL INCREASED
  3. ALLOPURINOL TAB [Suspect]
     Active Substance: ALLOPURINOL
  4. CARVEDILOL TAB [Suspect]
     Active Substance: CARVEDILOL
  5. LATANOPROST SOL. [Suspect]
     Active Substance: LATANOPROST
     Route: 047
  6. LOSARTAN TAB [Suspect]
     Active Substance: LOSARTAN
  7. AMLODIPINE [Suspect]
     Active Substance: AMLODIPINE BESYLATE
  8. DYAZIDE [Suspect]
     Active Substance: HYDROCHLOROTHIAZIDE\TRIAMTERENE
     Dosage: 37.25 DF

REACTIONS (4)
  - Haematocrit decreased [None]
  - White blood cell count decreased [None]
  - Red blood cell count decreased [None]
  - Haemoglobin decreased [None]

NARRATIVE: CASE EVENT DATE: 20110927
